FAERS Safety Report 21070931 (Version 1)
Quarter: 2022Q3

REPORT INFORMATION
  Report Type: Spontaneous
  Country: US (occurrence: None)
  Receive Date: 20220712
  Receipt Date: 20220712
  Transmission Date: 20221027
  Serious: Yes (Death)
  Sender: FDA-Public Use
  Company Number: None

PATIENT
  Age: 79 Year
  Sex: Male

DRUGS (12)
  1. ASTAGRAF XL [Suspect]
     Active Substance: TACROLIMUS
     Indication: Renal transplant
     Dosage: FREQUENCY : DAILY;?
     Route: 048
     Dates: start: 20150915, end: 20220712
  2. MYCOPHENOLATE MOFETIL [Suspect]
     Active Substance: MYCOPHENOLATE MOFETIL
     Indication: Renal transplant
     Dosage: FREQUENCY : 3 TIMES A DAY;?
     Route: 048
     Dates: start: 20150915, end: 20220712
  3. Vitamin D [Concomitant]
  4. PREDNISONE [Concomitant]
  5. LOVASTATIN [Concomitant]
  6. CARVEDILOL [Concomitant]
  7. Aspirin [Concomitant]
  8. LOSARTAN [Concomitant]
  9. PANTOPRAZOLE [Concomitant]
  10. MIRTAZAPINE [Concomitant]
  11. CLONIDINE [Concomitant]
  12. HYDRALAZINE [Concomitant]

REACTIONS (1)
  - Respiratory failure [None]

NARRATIVE: CASE EVENT DATE: 20220712
